FAERS Safety Report 5186659-2 (Version None)
Quarter: 2006Q4

REPORT INFORMATION
  Report Type: 
  Country: None (occurrence: None)
  Receive Date: 20061220
  Receipt Date: 20060206
  Transmission Date: 20070319
  Serious: No
  Sender: FDA-Public Use
  Company Number: US-AMGEN-US167663

PATIENT
  Sex: Male

DRUGS (5)
  1. ENBREL [Suspect]
     Indication: PSORIASIS
     Route: 065
     Dates: start: 20051010
  2. LANTUS [Concomitant]
     Dates: start: 20031001
  3. NOVALOG INSULIN [Concomitant]
     Dates: start: 20041001
  4. PREVACID [Concomitant]
     Dates: start: 19960101
  5. MEVACOR [Concomitant]
     Dates: start: 20051212

REACTIONS (1)
  - CONJUNCTIVITIS [None]
